FAERS Safety Report 24388844 (Version 2)
Quarter: 2024Q4

REPORT INFORMATION
  Report Type: Report from Study
  Country: AU (occurrence: AU)
  Receive Date: 20241002
  Receipt Date: 20241209
  Transmission Date: 20250114
  Serious: Yes (Death)
  Sender: KARYOPHARM THERAPEUTICS
  Company Number: AU-ANTENGENE-20240902773

PATIENT
  Sex: Male

DRUGS (1)
  1. SELINEXOR [Suspect]
     Active Substance: SELINEXOR
     Indication: Diffuse large B-cell lymphoma
     Dosage: 60 MG, BIW

REACTIONS (1)
  - Diffuse large B-cell lymphoma refractory [Fatal]
